FAERS Safety Report 7716509-9 (Version None)
Quarter: 2011Q3

REPORT INFORMATION
  Report Type: 
  Country: None (occurrence: None)
  Receive Date: 20110829
  Receipt Date: 20101209
  Transmission Date: 20111222
  Serious: Yes (Other)
  Sender: FDA-Public Use
  Company Number: US-BAYER-2010-008566

PATIENT
  Age: 44 Year
  Sex: Female

DRUGS (2)
  1. MIRENA [Suspect]
     Indication: MENORRHAGIA
     Dosage: 20 MCG/24HR, UNK
     Dates: start: 20090617, end: 20101115
  2. MIRENA [Suspect]
     Indication: DYSMENORRHOEA

REACTIONS (6)
  - DEVICE EXPULSION [None]
  - INFECTION [None]
  - POLYMENORRHOEA [None]
  - MOOD SWINGS [None]
  - VAGINAL HAEMORRHAGE [None]
  - MENSTRUATION IRREGULAR [None]
